FAERS Safety Report 4784754-0 (Version None)
Quarter: 2005Q3

REPORT INFORMATION
  Report Type: 
  Country: None (occurrence: None)
  Receive Date: 20050929
  Receipt Date: 20050929
  Transmission Date: 20060218
  Serious: Yes (Other)
  Sender: FDA-Public Use
  Company Number: None

PATIENT
  Sex: Male

DRUGS (1)
  1. ZYPREXA [Suspect]
     Indication: SCHIZOAFFECTIVE DISORDER
     Dosage: 10 MG PO BID
     Route: 048
     Dates: start: 20050906, end: 20050912

REACTIONS (2)
  - ABNORMAL BEHAVIOUR [None]
  - TARDIVE DYSKINESIA [None]
